FAERS Safety Report 7102126-0 (Version None)
Quarter: 2010Q4

REPORT INFORMATION
  Report Type: 
  Country: None (occurrence: None)
  Receive Date: 20101115
  Receipt Date: 20101103
  Transmission Date: 20110411
  Serious: Yes (Death)
  Sender: FDA-Public Use
  Company Number: US-BIOGENIDEC-2010BI032731

PATIENT
  Sex: Male

DRUGS (2)
  1. AVONEX [Suspect]
     Indication: MULTIPLE SCLEROSIS
     Route: 030
     Dates: start: 19990407
  2. AVONEX [Suspect]
     Route: 030
     Dates: start: 20100824

REACTIONS (3)
  - BRAIN NEOPLASM MALIGNANT [None]
  - HEPATIC NEOPLASM MALIGNANT [None]
  - LUNG NEOPLASM MALIGNANT [None]
